FAERS Safety Report 17088672 (Version 2)
Quarter: 2019Q4

REPORT INFORMATION
  Report Type: Spontaneous
  Country: US (occurrence: US)
  Receive Date: 20191128
  Receipt Date: 20191221
  Transmission Date: 20200122
  Serious: Yes (Death, Life-Threatening, Hospitalization, Other)
  Sender: FDA-Public Use
  Company Number: US-BRISTOL-MYERS SQUIBB COMPANY-BMS-2019-114524

PATIENT
  Age: 72 Year
  Sex: Male

DRUGS (5)
  1. ELIQUIS [Suspect]
     Active Substance: APIXABAN
     Indication: MYOCARDIAL INFARCTION
     Dosage: 5 MILLIGRAM, BID
     Route: 065
  2. ESBRIET [Concomitant]
     Active Substance: PIRFENIDONE
     Indication: PULMONARY FIBROSIS
     Dosage: UNK
     Route: 065
  3. SOTALOL HYDROCHLORIDE. [Suspect]
     Active Substance: SOTALOL HYDROCHLORIDE
     Indication: ATRIAL FIBRILLATION
     Dosage: UNK
     Route: 065
  4. TIKOSYN [Suspect]
     Active Substance: DOFETILIDE
     Indication: ATRIAL FIBRILLATION
     Dosage: 250 MILLIGRAM, BID
     Route: 065
  5. PLAVIX [Suspect]
     Active Substance: CLOPIDOGREL BISULFATE
     Indication: MYOCARDIAL INFARCTION
     Dosage: 75 MILLIGRAM, QD
     Route: 065

REACTIONS (7)
  - Myocardial infarction [Fatal]
  - Coronary artery thrombosis [Unknown]
  - Intentional product use issue [Unknown]
  - Atrial fibrillation [Unknown]
  - Cranial nerve paralysis [Unknown]
  - Eyelid ptosis [Unknown]
  - Sleep apnoea syndrome [Unknown]

NARRATIVE: CASE EVENT DATE: 20190724
